FAERS Safety Report 12732574 (Version 1)
Quarter: 2016Q3

REPORT INFORMATION
  Report Type: Spontaneous
  Country: IN (occurrence: IN)
  Receive Date: 20160912
  Receipt Date: 20160912
  Transmission Date: 20161109
  Serious: Yes (Other)
  Sender: FDA-Public Use
  Company Number: IN-CMP PHARMA-2016CMP00022

PATIENT

DRUGS (2)
  1. PYRIDOXINE [Concomitant]
     Active Substance: PYRIDOXINE
     Route: 065
  2. ISONIAZID. [Suspect]
     Active Substance: ISONIAZID
     Route: 065

REACTIONS (3)
  - Encephalitis [Recovering/Resolving]
  - Peritoneal dialysis complication [Recovering/Resolving]
  - Neurotoxicity [None]
